FAERS Safety Report 4576722-9 (Version None)
Quarter: 2005Q1

REPORT INFORMATION
  Report Type: 
  Country: None (occurrence: None)
  Receive Date: 20050207
  Receipt Date: 20050121
  Transmission Date: 20050727
  Serious: Yes (Other)
  Sender: FDA-Public Use
  Company Number: 2005-0007996

PATIENT
  Sex: Male

DRUGS (2)
  1. TRUVADA [Suspect]
     Indication: HIV INFECTION
     Dosage: ORAL
     Route: 048
  2. KALETRA [Concomitant]

REACTIONS (2)
  - CONDITION AGGRAVATED [None]
  - HEPATITIS B [None]
